FAERS Safety Report 5883833-4 (Version None)
Quarter: 2008Q3

REPORT INFORMATION
  Report Type: 
  Country: None (occurrence: None)
  Receive Date: 20080915
  Receipt Date: 20080904
  Transmission Date: 20090109
  Serious: Yes (Other)
  Sender: FDA-Public Use
  Company Number: US-ROCHE-584481

PATIENT
  Age: 57 Year
  Sex: Female

DRUGS (2)
  1. PEGASYS [Suspect]
     Indication: HEPATITIS C
     Route: 065
     Dates: start: 20080501
  2. RIBAVIRIN [Suspect]
     Indication: HEPATITIS C
     Route: 065
     Dates: start: 20080501

REACTIONS (6)
  - ALOPECIA [None]
  - BREAST MASS [None]
  - DRY MOUTH [None]
  - DRY SKIN [None]
  - LYMPHADENOPATHY [None]
  - WEIGHT DECREASED [None]
